FAERS Safety Report 5672030-3 (Version None)
Quarter: 2008Q1

REPORT INFORMATION
  Report Type: 
  Country: None (occurrence: None)
  Receive Date: 20080317
  Receipt Date: 20080317
  Transmission Date: 20080703
  Serious: Yes (Death)
  Sender: FDA-Public Use
  Company Number: None

PATIENT
  Age: 81 Year
  Sex: Male
  Weight: 64.8644 kg

DRUGS (2)
  1. AVASTIN [Suspect]
     Indication: DEATH
     Dosage: 15 MG/KG Q21D:INTRAVENOUS (NOT OTHERWISE SPECIFIED)
     Route: 042
     Dates: start: 20080205, end: 20080226
  2. TARCEVA [Suspect]
     Indication: DEATH
     Dosage: 150MG QD : ORAL
     Route: 048
     Dates: start: 20080205, end: 20080228

REACTIONS (1)
  - LOSS OF CONSCIOUSNESS [None]
